FAERS Safety Report 8381266-2 (Version None)
Quarter: 2012Q2

REPORT INFORMATION
  Report Type: 
  Country: None (occurrence: None)
  Receive Date: 20120522
  Receipt Date: 20120508
  Transmission Date: 20120825
  Serious: Yes (Hospitalization)
  Sender: FDA-Public Use
  Company Number: JPI-P-021071

PATIENT
  Age: 42 Year
  Sex: Female
  Weight: 68.0396 kg

DRUGS (3)
  1. GABAPENTIN [Concomitant]
  2. PROGESTERONE [Concomitant]
  3. XYREM [Suspect]
     Indication: CATAPLEXY
     Dosage: 3 GM (1.5 GM, 2 IN 1 D), ORAL 9 GM (4.5 GM, TEMPORARY DELAY DUE TO DELIVERY ISSUES), ORAL
     Route: 048
     Dates: start: 20110325

REACTIONS (2)
  - CHOLELITHIASIS [None]
  - GASTROENTERITIS VIRAL [None]
